FAERS Safety Report 9278386 (Version 2)
Quarter: 2016Q4

REPORT INFORMATION
  Report Type: Report from Study
  Country: US (occurrence: US)
  Receive Date: 20130508
  Receipt Date: 20161006
  Transmission Date: 20170207
  Serious: Yes (Other)
  Sender: FDA-Public Use
  Company Number: US-ROCHE-1220854

PATIENT
  Age: 65 Year
  Sex: Female
  Weight: 67.1 kg

DRUGS (7)
  1. VELIPARIB [Suspect]
     Active Substance: VELIPARIB
     Route: 048
     Dates: end: 20140220
  2. CARBOPLATIN. [Suspect]
     Active Substance: CARBOPLATIN
     Indication: OVARIAN EPITHELIAL CANCER
     Dosage: AUC = 6; FOR CYCLES 1 AND 2 TO 6; DATE OF LAST DOSE PRIOR TO SAE: 08/FEB/2013
     Route: 042
     Dates: start: 20121113, end: 20140220
  3. BEVACIZUMAB [Suspect]
     Active Substance: BEVACIZUMAB
     Route: 042
     Dates: end: 20140220
  4. BEVACIZUMAB [Suspect]
     Active Substance: BEVACIZUMAB
     Indication: OVARIAN EPITHELIAL CANCER
     Dosage: FOR CYCLES 2- 6 AND CYCLES 7-22; DATE OF LAST DOSE PRIOR TO SAE: 08/FEB/2013
     Route: 042
     Dates: start: 20121113
  5. VELIPARIB [Suspect]
     Active Substance: VELIPARIB
     Route: 048
  6. PACLITAXEL. [Suspect]
     Active Substance: PACLITAXEL
     Indication: OVARIAN EPITHELIAL CANCER
     Dosage: FOR CYCLES 1 AND 2 TO 6; DATE OF LAST DOSE PRIOR TO SAE: 21/FEB/2013
     Route: 042
     Dates: start: 20121113, end: 20140220
  7. VELIPARIB [Suspect]
     Active Substance: VELIPARIB
     Indication: OVARIAN EPITHELIAL CANCER
     Dosage: DATE OF LAST DOSE PRIOR TO SAE: 12/FEB/2013
     Route: 048
     Dates: start: 20121113

REACTIONS (4)
  - Neutrophil count decreased [Unknown]
  - Hypertension [Unknown]
  - Tremor [Unknown]
  - Syncope [Unknown]

NARRATIVE: CASE EVENT DATE: 20130226
